FAERS Safety Report 19410812 (Version 1)
Quarter: 2021Q2

REPORT INFORMATION
  Report Type: Spontaneous
  Country: US (occurrence: US)
  Receive Date: 20210612
  Receipt Date: 20210612
  Transmission Date: 20210717
  Serious: Yes (Hospitalization)
  Sender: FDA-Public Use
  Company Number: None

PATIENT
  Age: 58 Year
  Sex: Female
  Weight: 66.8 kg

DRUGS (2)
  1. TAXOL [Suspect]
     Active Substance: PACLITAXEL
     Dates: end: 20210329
  2. CARBOPLATIN. [Suspect]
     Active Substance: CARBOPLATIN
     Dates: end: 20210329

REACTIONS (6)
  - Sensation of foreign body [None]
  - Pain [None]
  - Drug ineffective [None]
  - Oesophageal stenosis [None]
  - Odynophagia [None]
  - Tooth fracture [None]

NARRATIVE: CASE EVENT DATE: 20210602
